FAERS Safety Report 7823482-1 (Version None)
Quarter: 2011Q4

REPORT INFORMATION
  Report Type: 
  Country: None (occurrence: None)
  Receive Date: 20111019
  Receipt Date: 20111012
  Transmission Date: 20120403
  Serious: Yes (Other)
  Sender: FDA-Public Use
  Company Number: CA-PFIZER INC-2011244488

PATIENT
  Age: 75 Year
  Sex: Male

DRUGS (3)
  1. NEXIUM [Concomitant]
     Dosage: UNK
  2. ATIVAN [Concomitant]
     Dosage: UNK
  3. XALATAN [Suspect]
     Indication: GLAUCOMA
     Dosage: 1 GTT IN BOTH EYES, 1X/DAY AT BEDTIME
     Route: 047

REACTIONS (1)
  - CATARACT [None]
